FAERS Safety Report 5216778-3 (Version None)
Quarter: 2007Q1

REPORT INFORMATION
  Report Type: 
  Country: None (occurrence: None)
  Receive Date: 20070118
  Receipt Date: 20070109
  Transmission Date: 20070707
  Serious: Yes (Hospitalization)
  Sender: FDA-Public Use
  Company Number: 2007SP000539

PATIENT
  Sex: Female

DRUGS (6)
  1. NOXAFIL [Suspect]
     Indication: MUCORMYCOSIS
     Dosage: PO
     Route: 048
     Dates: start: 20061117
  2. MABTHERA [Concomitant]
  3. CYCLOPHOSPHAMIDE [Concomitant]
  4. ADRIAMYCIN PFS [Concomitant]
  5. VINCRISTINE [Concomitant]
  6. PREDNISONE [Concomitant]

REACTIONS (1)
  - PANCYTOPENIA [None]
